FAERS Safety Report 5048536-7 (Version None)
Quarter: 2006Q3

REPORT INFORMATION
  Report Type: 
  Country: None (occurrence: None)
  Receive Date: 20060705
  Receipt Date: 20060622
  Transmission Date: 20061208
  Serious: Yes (Hospitalization)
  Sender: FDA-Public Use
  Company Number: ST-2006-009103

PATIENT
  Age: 53 Year
  Sex: Female

DRUGS (11)
  1. OLMETEC [Suspect]
     Indication: HYPERTENSION
     Dates: start: 20051107
  2. LOXONIN [Suspect]
     Indication: ARTHRALGIA
     Dates: start: 20051107
  3. PABRON GOLD [Suspect]
     Indication: PYREXIA
     Dates: start: 20051118
  4. PABRON                   /00520201/ [Suspect]
     Indication: PYREXIA
     Dates: start: 20051118
  5. PL GRAN. [Suspect]
     Dates: start: 20051120
  6. MUCOSTA [Suspect]
     Indication: ARTHRALGIA
     Dates: start: 20051107
  7. RIMATIL [Suspect]
     Indication: ARTHRALGIA
     Dates: start: 20051107
  8. FLOMOX [Suspect]
     Dates: start: 20051120
  9. GASTER [Suspect]
     Dates: start: 20051120
  10. PANIMYCIN [Suspect]
     Dates: start: 20051125
  11. VITAMIN [Suspect]
     Dates: start: 20051125

REACTIONS (3)
  - HEADACHE [None]
  - MALAISE [None]
  - STEVENS-JOHNSON SYNDROME [None]
